FAERS Safety Report 15203769 (Version 1)
Quarter: 2018Q3

REPORT INFORMATION
  Report Type: Spontaneous
  Country: FR (occurrence: FR)
  Receive Date: 20180726
  Receipt Date: 20180726
  Transmission Date: 20181010
  Serious: Yes (Hospitalization)
  Sender: FDA-Public Use
  Company Number: FR-TEVA-2018-FR-930907

PATIENT
  Age: 71 Year
  Sex: Female
  Weight: 86 kg

DRUGS (8)
  1. RAMIPRIL. [Concomitant]
     Active Substance: RAMIPRIL
     Route: 065
  2. DAFALGAN [Concomitant]
     Active Substance: ACETAMINOPHEN
     Route: 065
  3. GABAPENTINE [Suspect]
     Active Substance: GABAPENTIN
     Indication: PAIN
     Dosage: 300 MILLIGRAM DAILY;
     Route: 048
  4. SERETIDE [Concomitant]
     Active Substance: FLUTICASONE PROPIONATE\SALMETEROL XINAFOATE
     Route: 065
  5. ZOPICLONE [Concomitant]
     Active Substance: ZOPICLONE
     Route: 065
  6. LASILIX RETARD 60 MG, G?LULE [Suspect]
     Active Substance: FUROSEMIDE
     Indication: HYPERTENSION
     Dosage: 60 MILLIGRAM DAILY;
     Route: 048
  7. DUROGESIC [Suspect]
     Active Substance: FENTANYL
     Indication: VENOUS ULCER PAIN
     Route: 062
     Dates: end: 20180610
  8. ADENURIC 80 MG, COMPRIM? PELLICUL? [Concomitant]
     Active Substance: FEBUXOSTAT

REACTIONS (3)
  - Malaise [Recovered/Resolved]
  - Hypotension [Recovered/Resolved]
  - Somnolence [Recovered/Resolved]

NARRATIVE: CASE EVENT DATE: 20180610
